FAERS Safety Report 21732722 (Version 1)
Quarter: 2022Q4

REPORT INFORMATION
  Report Type: Report from Study
  Country: CA (occurrence: CA)
  Receive Date: 20221215
  Receipt Date: 20221215
  Transmission Date: 20230112
  Serious: Yes (Other)
  Sender: FDA-Public Use
  Company Number: CA-JNJFOC-20221029253

PATIENT
  Age: 61 Year
  Sex: Female
  Weight: 86 kg

DRUGS (1)
  1. STELARA [Suspect]
     Active Substance: USTEKINUMAB
     Indication: Crohn^s disease
     Dosage: STRENGTH: 130MG/26ML?EXPIRATION DATE 31-OCT-2024
     Route: 042
     Dates: start: 20221013

REACTIONS (14)
  - Dyspnoea at rest [Recovered/Resolved]
  - Infusion related reaction [Recovered/Resolved]
  - Vaginal infection [Recovering/Resolving]
  - Asthma [Unknown]
  - Insomnia [Recovered/Resolved]
  - Visual impairment [Recovered/Resolved]
  - Musculoskeletal stiffness [Recovered/Resolved]
  - Headache [Unknown]
  - Nausea [Recovered/Resolved]
  - Vomiting [Recovering/Resolving]
  - Diarrhoea [Recovered/Resolved]
  - Frequent bowel movements [Recovering/Resolving]
  - Arthralgia [Recovered/Resolved]
  - Off label use [Unknown]

NARRATIVE: CASE EVENT DATE: 20220101
